FAERS Safety Report 18314629 (Version 6)
Quarter: 2022Q2

REPORT INFORMATION
  Report Type: Report from Study
  Country: US (occurrence: US)
  Receive Date: 20200925
  Receipt Date: 20220411
  Transmission Date: 20220721
  Serious: Yes (Hospitalization, Other)
  Sender: FDA-Public Use
  Company Number: US-NOVARTISPH-NVSC2020US254159

PATIENT
  Age: 16 Year
  Sex: Male
  Weight: 61 kg

DRUGS (2)
  1. ADAKVEO [Suspect]
     Active Substance: CRIZANLIZUMAB-TMCA
     Indication: Sickle cell anaemia with crisis
     Dosage: 295 MG, QMO (VIAL)
     Route: 042
     Dates: start: 20200729, end: 20200929
  2. ADAKVEO [Suspect]
     Active Substance: CRIZANLIZUMAB-TMCA
     Indication: Sickle cell disease
     Dosage: 295 MG, QMO (VIAL)
     Route: 042
     Dates: start: 20200929, end: 20201112

REACTIONS (7)
  - Sickle cell anaemia with crisis [Recovered/Resolved]
  - Pain [Recovering/Resolving]
  - Ill-defined disorder [Not Recovered/Not Resolved]
  - Osteomyelitis [Recovered/Resolved]
  - Peripheral swelling [Recovering/Resolving]
  - Pyrexia [Unknown]
  - Sickle cell anaemia with crisis [Recovered/Resolved]

NARRATIVE: CASE EVENT DATE: 20200910
